FAERS Safety Report 12500105 (Version 1)
Quarter: 2016Q2

REPORT INFORMATION
  Report Type: Spontaneous
  Country: US (occurrence: None)
  Receive Date: 20160624
  Receipt Date: 20160624
  Transmission Date: 20160815
  Serious: Yes (Other)
  Sender: FDA-Public Use
  Company Number: None

PATIENT
  Age: 72 Year
  Sex: Male
  Weight: 107.3 kg

DRUGS (12)
  1. TERZOSIN [Concomitant]
  2. APIXABAN 10 MG [Suspect]
     Active Substance: APIXABAN
     Indication: PULMONARY EMBOLISM
     Route: 048
     Dates: start: 20160529, end: 20160615
  3. FINASTERIDE. [Concomitant]
     Active Substance: FINASTERIDE
  4. POTASSIUM [Concomitant]
     Active Substance: POTASSIUM
  5. PROCHLORPERAZINE. [Concomitant]
     Active Substance: PROCHLORPERAZINE
  6. ONDANSETRON [Concomitant]
     Active Substance: ONDANSETRON
  7. BENZONATATE. [Concomitant]
     Active Substance: BENZONATATE
  8. FAMCICLOVIR. [Concomitant]
     Active Substance: FAMCICLOVIR
  9. TRIAMTERENE-HYDROCHLORTHIAZIDE [Concomitant]
  10. ALLOPURINOL. [Concomitant]
     Active Substance: ALLOPURINOL
  11. POLYETHYLENE GLYCOL [Concomitant]
     Active Substance: POLYETHYLENE GLYCOLS
  12. PREDNISONE. [Concomitant]
     Active Substance: PREDNISONE

REACTIONS (4)
  - Tumour associated fever [None]
  - Weight decreased [None]
  - Disease progression [None]
  - Fatigue [None]

NARRATIVE: CASE EVENT DATE: 20160622
